FAERS Safety Report 7998436-5 (Version None)
Quarter: 2011Q4

REPORT INFORMATION
  Report Type: 
  Country: None (occurrence: None)
  Receive Date: 20111221
  Receipt Date: 20111019
  Transmission Date: 20120403
  Serious: No
  Sender: FDA-Public Use
  Company Number: US-GLAXOSMITHKLINE-A0949729A

PATIENT
  Age: 68 Year
  Sex: Male
  Weight: 84.5 kg

DRUGS (3)
  1. VITAMIN D [Concomitant]
  2. LOVAZA [Suspect]
     Indication: BLOOD TRIGLYCERIDES INCREASED
     Dosage: 1CAP PER DAY
     Route: 048
     Dates: end: 20110901
  3. NEXIUM [Concomitant]

REACTIONS (1)
  - BACK PAIN [None]
